FAERS Safety Report 12740885 (Version 2)
Quarter: 2016Q4

REPORT INFORMATION
  Report Type: Report from Study
  Country: BR (occurrence: BR)
  Receive Date: 20160914
  Receipt Date: 20161114
  Transmission Date: 20170207
  Serious: Yes (Other)
  Sender: FDA-Public Use
  Company Number: BR-ROCHE-1829293

PATIENT
  Age: 34 Year
  Sex: Female
  Weight: 67 kg

DRUGS (4)
  1. LOSARTAN. [Concomitant]
     Active Substance: LOSARTAN
     Indication: HYPERTENSION
     Dosage: (STARTED SINCE 3 YEARS AGO)
     Route: 048
  2. TORASEMIDE [Concomitant]
     Active Substance: TORSEMIDE
     Indication: HYPERTENSION
     Dosage: STARTED SINCE 10 DAYS AGO
     Route: 048
  3. XOLAIR [Suspect]
     Active Substance: OMALIZUMAB
     Route: 058
     Dates: start: 201607
  4. XOLAIR [Suspect]
     Active Substance: OMALIZUMAB
     Indication: ASTHMA
     Dosage: (4 AMPULES) (EVERY 15 DAYS)
     Route: 058
     Dates: start: 20151209

REACTIONS (7)
  - Asthma [Not Recovered/Not Resolved]
  - Hypersensitivity [Unknown]
  - Fatigue [Not Recovered/Not Resolved]
  - Influenza [Recovering/Resolving]
  - Rhinitis [Unknown]
  - Headache [Recovering/Resolving]
  - Malaise [Not Recovered/Not Resolved]

NARRATIVE: CASE EVENT DATE: 20160428
